FAERS Safety Report 19248274 (Version 1)
Quarter: 2021Q2

REPORT INFORMATION
  Report Type: Spontaneous
  Country: AU (occurrence: AU)
  Receive Date: 20210512
  Receipt Date: 20210512
  Transmission Date: 20210717
  Serious: Yes (Hospitalization)
  Sender: FDA-Public Use
  Company Number: AU-TRIS PHARMA, INC.-21AU009444

PATIENT

DRUGS (4)
  1. NEXICLON XR [Suspect]
     Active Substance: CLONIDINE
     Indication: INTENTIONAL PRODUCT MISUSE
     Route: 048
  2. LISDEXAMFETAMINE [Suspect]
     Active Substance: LISDEXAMFETAMINE
     Indication: INTENTIONAL PRODUCT USE ISSUE
     Route: 048
  3. LISDEXAMFETAMINE [Suspect]
     Active Substance: LISDEXAMFETAMINE
     Indication: TOXICITY TO VARIOUS AGENTS
  4. NEXICLON XR [Suspect]
     Active Substance: CLONIDINE
     Indication: TOXICITY TO VARIOUS AGENTS

REACTIONS (17)
  - Respiration abnormal [Recovered/Resolved]
  - Drug screen positive [Recovered/Resolved]
  - Tachycardia [Recovered/Resolved]
  - Somnolence [Recovered/Resolved]
  - Bradycardia [Recovered/Resolved]
  - Flatulence [Recovered/Resolved]
  - Altered state of consciousness [Recovered/Resolved]
  - Intentional product misuse [Unknown]
  - Dyskinesia [Recovered/Resolved]
  - Agitation [Recovered/Resolved]
  - Flushing [Recovered/Resolved]
  - Abdominal distension [Recovered/Resolved]
  - Mydriasis [Recovered/Resolved]
  - Toxicity to various agents [Recovered/Resolved]
  - Hypertension [Recovered/Resolved]
  - Insomnia [Recovered/Resolved]
  - Rhinitis [Recovered/Resolved]
